FAERS Safety Report 22333939 (Version 6)
Quarter: 2025Q4

REPORT INFORMATION
  Report Type: Other
  Country: US (occurrence: US)
  Receive Date: 20230517
  Receipt Date: 20251019
  Transmission Date: 20260117
  Serious: No
  Sender: TRAVERE THERAPEUTICS
  Company Number: US-TRAVERE-2023TVT00164

PATIENT
  Sex: Female

DRUGS (6)
  1. FILSPARI [Suspect]
     Active Substance: SPARSENTAN
     Indication: IgA nephropathy
     Route: 048
  2. FILSPARI [Suspect]
     Active Substance: SPARSENTAN
     Dosage: 400 MG
     Route: 048
  3. FILSPARI [Suspect]
     Active Substance: SPARSENTAN
     Dosage: 100 MG (HALF 200MG TABLET AND ONLY TAKE 100MG)
     Route: 048
  4. FILSPARI [Suspect]
     Active Substance: SPARSENTAN
     Route: 048
  5. FILSPARI [Suspect]
     Active Substance: SPARSENTAN
     Dosage: 100 MG (HALF 200MG TABLET AND ONLY TAKE 100MG)
     Route: 048
  6. FILSPARI [Suspect]
     Active Substance: SPARSENTAN
     Route: 048

REACTIONS (10)
  - Nasopharyngitis [Unknown]
  - Dyspnoea [Unknown]
  - Palpitations [Unknown]
  - Gout [Unknown]
  - Blood pressure abnormal [Unknown]
  - Pulse abnormal [Unknown]
  - Faeces discoloured [Unknown]
  - Chromaturia [Recovered/Resolved]
  - Pain [Unknown]
  - Musculoskeletal stiffness [Unknown]
